FAERS Safety Report 11390323 (Version 1)
Quarter: 2015Q3

REPORT INFORMATION
  Report Type: Spontaneous
  Country: US (occurrence: None)
  Receive Date: 20150814
  Receipt Date: 20150814
  Transmission Date: 20151125
  Serious: No
  Sender: FDA-Public Use
  Company Number: None

PATIENT
  Age: 65 Year
  Sex: Male
  Weight: 45.36 kg

DRUGS (5)
  1. TRAMADOL. [Concomitant]
     Active Substance: TRAMADOL
  2. CLONAZEPAM. [Concomitant]
     Active Substance: CLONAZEPAM
  3. CEFUROXIME. [Concomitant]
     Active Substance: CEFUROXIME
  4. LEVOFLOXACIN. [Suspect]
     Active Substance: LEVOFLOXACIN
     Indication: ARTHRITIS INFECTIVE
     Route: 048
     Dates: start: 20150731, end: 20150801
  5. ZOLPIDEM [Concomitant]
     Active Substance: ZOLPIDEM\ZOLPIDEM TARTRATE

REACTIONS (3)
  - Arthralgia [None]
  - Tendon pain [None]
  - Joint swelling [None]

NARRATIVE: CASE EVENT DATE: 20150801
